FAERS Safety Report 24810177 (Version 1)
Quarter: 2025Q1

REPORT INFORMATION
  Report Type: Spontaneous
  Country: US (occurrence: None)
  Receive Date: 20250106
  Receipt Date: 20250106
  Transmission Date: 20250409
  Serious: Yes (Hospitalization)
  Sender: FDA-CTU
  Company Number: None

PATIENT
  Age: 24 Month
  Sex: Female

DRUGS (4)
  1. TADLIQ [Suspect]
     Active Substance: TADALAFIL
     Indication: Pulmonary arterial hypertension
     Dosage: 3 ML ONCE DAILY BY MOUTH?
     Route: 048
     Dates: start: 202402
  2. AMBRISENTAN [Concomitant]
     Active Substance: AMBRISENTAN
  3. REMODULIN [Concomitant]
     Active Substance: TREPROSTINIL
  4. REMODULIN [Suspect]
     Active Substance: TREPROSTINIL

REACTIONS (1)
  - Hospitalisation [None]

NARRATIVE: CASE EVENT DATE: 20250103
